FAERS Safety Report 21334946 (Version 1)
Quarter: 2022Q3

REPORT INFORMATION
  Report Type: Spontaneous
  Country: JP (occurrence: JP)
  Receive Date: 20220914
  Receipt Date: 20220914
  Transmission Date: 20221026
  Serious: Yes (Hospitalization, Other)
  Sender: FDA-Public Use
  Company Number: JP-BRISTOL-MYERS SQUIBB COMPANY-2022-103618

PATIENT
  Age: 79 Year
  Sex: Male
  Weight: 62.3 kg

DRUGS (3)
  1. YERVOY [Suspect]
     Active Substance: IPILIMUMAB
     Indication: Oesophageal carcinoma
     Route: 065
  2. OPDIVO [Suspect]
     Active Substance: NIVOLUMAB
     Indication: Oesophageal carcinoma
     Route: 065
  3. OPDIVO [Suspect]
     Active Substance: NIVOLUMAB
     Route: 065

REACTIONS (11)
  - Pyrexia [Unknown]
  - Immune-mediated enterocolitis [Unknown]
  - Metastases to pleura [Unknown]
  - Metastases to pelvis [Unknown]
  - Pleural effusion [Unknown]
  - Atelectasis [Unknown]
  - Pyelonephritis [Unknown]
  - Cardiac failure [Unknown]
  - Escherichia test positive [Unknown]
  - Diarrhoea [Unknown]
  - Prerenal failure [Unknown]
